FAERS Safety Report 5950128-X (Version None)
Quarter: 2008Q4

REPORT INFORMATION
  Report Type: 
  Country: None (occurrence: None)
  Receive Date: 20081112
  Receipt Date: 20080530
  Transmission Date: 20090506
  Serious: No
  Sender: FDA-Public Use
  Company Number: US-BAYER-200819182NA

PATIENT
  Age: 84 Year
  Sex: Female
  Weight: 67 kg

DRUGS (7)
  1. BETAPACE [Suspect]
     Indication: ATRIAL FIBRILLATION
     Dosage: UNIT DOSE: 40 MG
     Route: 048
     Dates: start: 20080101
  2. SYNTHROID [Concomitant]
     Route: 048
     Dates: start: 19580101
  3. PEPCID [Concomitant]
     Route: 048
     Dates: start: 20030101
  4. POTASSIUM CHLORIDE [Concomitant]
     Route: 048
     Dates: start: 20030101
  5. ASPIRIN [Concomitant]
     Route: 048
  6. DIOVAN [Concomitant]
     Dates: start: 19580101
  7. GARAPENTINO [Concomitant]

REACTIONS (5)
  - ALOPECIA [None]
  - HEARING IMPAIRED [None]
  - HYPERSENSITIVITY [None]
  - PRURITUS [None]
  - VISUAL IMPAIRMENT [None]
